APPROVED DRUG PRODUCT: TRANDOLAPRIL
Active Ingredient: TRANDOLAPRIL
Strength: 4MG
Dosage Form/Route: TABLET;ORAL
Application: A077489 | Product #003
Applicant: TEVA PHARMACEUTICALS USA
Approved: Dec 12, 2006 | RLD: No | RS: No | Type: DISCN